FAERS Safety Report 13568387 (Version 2)
Quarter: 2017Q3

REPORT INFORMATION
  Report Type: Report from Study
  Country: BR (occurrence: BR)
  Receive Date: 20170522
  Receipt Date: 20170717
  Transmission Date: 20171127
  Serious: Yes (Life-Threatening)
  Sender: FDA-Public Use
  Company Number: PHHY2017BR074606

PATIENT
  Sex: Female
  Weight: 60 kg

DRUGS (2)
  1. VOTRIENT [Suspect]
     Active Substance: PAZOPANIB HYDROCHLORIDE
     Dosage: UNK
     Route: 065
     Dates: start: 201706
  2. VOTRIENT [Suspect]
     Active Substance: PAZOPANIB HYDROCHLORIDE
     Indication: METASTATIC RENAL CELL CARCINOMA
     Dosage: 1600 MG, QD
     Route: 065
     Dates: start: 20170421

REACTIONS (9)
  - Incorrect dose administered [Unknown]
  - Hunger [Unknown]
  - Musculoskeletal stiffness [Unknown]
  - Malaise [Unknown]
  - Head discomfort [Unknown]
  - Headache [Unknown]
  - Apparent death [Unknown]
  - Visual impairment [Unknown]
  - Abdominal pain upper [Unknown]
